FAERS Safety Report 6222365-0 (Version None)
Quarter: 2009Q2

REPORT INFORMATION
  Report Type: 
  Country: None (occurrence: None)
  Receive Date: 20090611
  Receipt Date: 20090521
  Transmission Date: 20091009
  Serious: Yes (Hospitalization)
  Sender: FDA-Public Use
  Company Number: JP-GENENTECH-281570

PATIENT
  Sex: Male

DRUGS (10)
  1. AVASTIN [Suspect]
     Indication: COLON CANCER METASTATIC
     Dosage: 215 MG, Q2W
     Route: 041
     Dates: start: 20090119, end: 20090330
  2. CAMPTOSAR [Suspect]
     Indication: COLON CANCER METASTATIC
     Dosage: 220 MG, UNK
     Route: 041
     Dates: start: 20090316, end: 20090330
  3. CALCIUM LEVOFOLINATE [Concomitant]
     Indication: LARGE INTESTINE CARCINOMA
     Dosage: 300 MG, UNK
     Route: 041
     Dates: start: 20090119, end: 20090330
  4. FLUOROURACIL [Concomitant]
     Indication: LARGE INTESTINE CARCINOMA
     Dosage: 3000 MG, UNK
     Route: 041
     Dates: start: 20090119, end: 20090330
  5. OXALIPLATIN [Concomitant]
     Indication: DRUG USE FOR UNKNOWN INDICATION
     Dosage: UNK
     Dates: start: 20090119, end: 20090302
  6. SEROTONE [Concomitant]
     Indication: DRUG USE FOR UNKNOWN INDICATION
  7. DECADRON [Concomitant]
     Indication: DRUG USE FOR UNKNOWN INDICATION
  8. GRANISETRON HCL [Concomitant]
     Indication: DRUG USE FOR UNKNOWN INDICATION
     Dosage: UNK
     Dates: start: 20090119, end: 20090316
  9. CALCIUM GLUCONATE [Concomitant]
     Indication: DRUG USE FOR UNKNOWN INDICATION
     Dosage: UNK
     Dates: start: 20090119, end: 20090302
  10. MAGNESIUM SULFATE [Concomitant]
     Indication: DRUG USE FOR UNKNOWN INDICATION
     Dosage: UNK
     Dates: start: 20090119, end: 20090302

REACTIONS (3)
  - INTERSTITIAL LUNG DISEASE [None]
  - MALAISE [None]
  - STOMATITIS [None]
